FAERS Safety Report 18409172 (Version 1)
Quarter: 2020Q4

REPORT INFORMATION
  Report Type: Spontaneous
  Country: US (occurrence: US)
  Receive Date: 20201020
  Receipt Date: 20201020
  Transmission Date: 20210114
  Serious: Yes (Hospitalization)
  Sender: FDA-Public Use
  Company Number: None

PATIENT
  Sex: Male

DRUGS (2)
  1. OCTREOTIDE. [Suspect]
     Active Substance: OCTREOTIDE
  2. ZARXIO [Suspect]
     Active Substance: FILGRASTIM-SNDZ

REACTIONS (2)
  - Therapy interrupted [None]
  - Pneumonia [None]
